FAERS Safety Report 6900616-4 (Version None)
Quarter: 2010Q3

REPORT INFORMATION
  Report Type: 
  Country: None (occurrence: None)
  Receive Date: 20100803
  Receipt Date: 20100723
  Transmission Date: 20110219
  Serious: No
  Sender: FDA-Public Use
  Company Number: US-JNJFOC-20100706137

PATIENT
  Sex: Male
  Weight: 79.38 kg

DRUGS (5)
  1. DURAGESIC-100 [Suspect]
     Indication: PAIN
     Route: 062
  2. DURAGESIC-100 [Suspect]
     Indication: NEPHROLITHIASIS
     Route: 062
  3. DURAGESIC-100 [Suspect]
     Route: 062
  4. UNKNOWN MEDICATION [Concomitant]
     Indication: PAIN
     Route: 048
  5. PROMETHAZINE [Concomitant]
     Indication: NAUSEA
     Route: 048

REACTIONS (8)
  - COUGH [None]
  - DRUG INEFFECTIVE [None]
  - DYSPHONIA [None]
  - OROPHARYNGEAL PAIN [None]
  - PRODUCT QUALITY ISSUE [None]
  - RASH [None]
  - VIRAL INFECTION [None]
  - WRONG TECHNIQUE IN DRUG USAGE PROCESS [None]
